FAERS Safety Report 9192411 (Version 3)
Quarter: 2013Q2

REPORT INFORMATION
  Report Type: Spontaneous
  Country: GB (occurrence: GB)
  Receive Date: 20130327
  Receipt Date: 20130610
  Transmission Date: 20140414
  Serious: Yes (Other)
  Sender: FDA-Public Use
  Company Number: GB-ELI_LILLY_AND_COMPANY-GB201303006772

PATIENT
  Age: 43 Year
  Sex: Male

DRUGS (4)
  1. ZYPREXA [Suspect]
     Dosage: 1 DF, UNKNOWN
     Route: 065
     Dates: start: 1997, end: 199806
  2. ZYPREXA [Suspect]
     Dosage: 10 MG, QD
     Route: 048
     Dates: start: 201003
  3. PROCYCLIDINE [Concomitant]
     Dosage: 5 MG, BID
     Route: 065
  4. EPILIM CHRONO [Concomitant]
     Dosage: 500 MG, EACH EVENING
     Route: 065

REACTIONS (4)
  - Adenocarcinoma of colon [Recovering/Resolving]
  - Malabsorption [Unknown]
  - Haematospermia [Unknown]
  - Drug ineffective [Unknown]
